FAERS Safety Report 10144808 (Version 1)
Quarter: 2014Q2

REPORT INFORMATION
  Report Type: Spontaneous
  Country: US (occurrence: US)
  Receive Date: 20140430
  Receipt Date: 20140430
  Transmission Date: 20141212
  Serious: No
  Sender: FDA-Public Use
  Company Number: US-SA-2013SA105435

PATIENT
  Sex: Male

DRUGS (1)
  1. ENOXAPARIN SODIUM - WINTHROP [Suspect]
     Dosage: DOSE: 80MG/0.8 ML
     Route: 065
     Dates: start: 201210

REACTIONS (2)
  - Adverse event [Unknown]
  - Eyelash thickening [Not Recovered/Not Resolved]
